FAERS Safety Report 6640994-7 (Version None)
Quarter: 2010Q1

REPORT INFORMATION
  Report Type: 
  Country: None (occurrence: None)
  Receive Date: 20100318
  Receipt Date: 20100308
  Transmission Date: 20100710
  Serious: Yes (Other)
  Sender: FDA-Public Use
  Company Number: B0606944A

PATIENT
  Sex: Female
  Weight: 46 kg

DRUGS (4)
  1. LAMICTAL CD [Suspect]
     Indication: EPILEPSY
     Route: 048
  2. URBANYL [Concomitant]
     Indication: EPILEPSY
     Dosage: 4MG TWICE PER DAY
     Route: 048
  3. EPITOMAX [Concomitant]
     Indication: EPILEPSY
  4. MAGNE B6 [Concomitant]

REACTIONS (6)
  - DRUG RESISTANCE [None]
  - ECCHYMOSIS [None]
  - EPILEPSY [None]
  - NAUSEA [None]
  - PRURITUS [None]
  - RASH [None]
